FAERS Safety Report 10243152 (Version 1)
Quarter: 2014Q2

REPORT INFORMATION
  Report Type: Spontaneous
  Country: US (occurrence: None)
  Receive Date: 20140616
  Receipt Date: 20140616
  Transmission Date: 20141212
  Serious: Yes (Disabling)
  Sender: FDA-Public Use
  Company Number: None

PATIENT
  Age: 55 Year
  Sex: Male
  Weight: 92.99 kg

DRUGS (1)
  1. LISINOPRIL [Suspect]
     Dosage: 1 PER DAY -- TAKEN BY MOUTH
     Route: 048

REACTIONS (2)
  - Cough [None]
  - Chest pain [None]
